FAERS Safety Report 6317608-9 (Version None)
Quarter: 2009Q3

REPORT INFORMATION
  Report Type: 
  Country: None (occurrence: None)
  Receive Date: 20090821
  Receipt Date: 20090817
  Transmission Date: 20100115
  Serious: Yes (Hospitalization)
  Sender: FDA-Public Use
  Company Number: FR-BRISTOL-MYERS SQUIBB COMPANY-14744700

PATIENT
  Age: 82 Year
  Sex: Female

DRUGS (4)
  1. COAPROVEL TABS 300MG/12.5MG [Suspect]
     Indication: HYPERTENSION
     Dosage: 1DF =300 MG/12.5MG
     Route: 048
     Dates: start: 20090601, end: 20090728
  2. APROVEL [Suspect]
     Dates: end: 20090626
  3. NEXIUM [Suspect]
     Indication: ABDOMINAL PAIN UPPER
     Dosage: TABS DOSE INCREASED TO 40 MG/ DAY
     Route: 048
     Dates: start: 20081201, end: 20090721
  4. EURELIX [Suspect]
     Dates: end: 20090626

REACTIONS (1)
  - HYPONATRAEMIA [None]
